FAERS Safety Report 5564992-X (Version None)
Quarter: 2007Q4

REPORT INFORMATION
  Report Type: 
  Country: None (occurrence: None)
  Receive Date: 20071212
  Receipt Date: 20071204
  Transmission Date: 20080405
  Serious: Yes (Death, Other)
  Sender: FDA-Public Use
  Company Number: 2007BI015602

PATIENT
  Age: 72 Year
  Sex: Male
  Weight: 59.4212 kg

DRUGS (4)
  1. ZEVALIN [Suspect]
     Indication: DIFFUSE LARGE B-CELL LYMPHOMA
     Dates: start: 20070501, end: 20070101
  2. ZEVALIN [Suspect]
     Indication: DIFFUSE LARGE B-CELL LYMPHOMA
     Dates: start: 20070601, end: 20070601
  3. RITUXIMAB [Concomitant]
  4. NEULASTA [Concomitant]

REACTIONS (24)
  - ANAEMIA [None]
  - AURICULAR SWELLING [None]
  - AXILLARY MASS [None]
  - BLOOD PRESSURE DIASTOLIC DECREASED [None]
  - CONDITION AGGRAVATED [None]
  - DISEASE PROGRESSION [None]
  - DYSPHAGIA [None]
  - ECCHYMOSIS [None]
  - FATIGUE [None]
  - GAIT DISTURBANCE [None]
  - GINGIVAL HYPERTROPHY [None]
  - HEART RATE INCREASED [None]
  - HYPOACUSIS [None]
  - HYPOTONIA [None]
  - LYMPHADENOPATHY [None]
  - LYMPHOMA [None]
  - MALAISE [None]
  - METASTATIC NEOPLASM [None]
  - OSTEOARTHRITIS [None]
  - PERIORBITAL OEDEMA [None]
  - PURPURA SENILE [None]
  - SKIN LESION [None]
  - THROMBOCYTOPENIA [None]
  - TONSILLAR HYPERTROPHY [None]
